FAERS Safety Report 20160241 (Version 1)
Quarter: 2021Q4

REPORT INFORMATION
  Report Type: Report from Study
  Country: JP (occurrence: JP)
  Receive Date: 20211208
  Receipt Date: 20211208
  Transmission Date: 20220303
  Serious: Yes (Hospitalization)
  Sender: FDA-Public Use
  Company Number: JP-Merck Healthcare KGaA-9280665

PATIENT
  Age: 76 Year
  Sex: Male

DRUGS (41)
  1. CETUXIMAB [Suspect]
     Active Substance: CETUXIMAB
     Indication: Squamous cell carcinoma of head and neck
     Dosage: 400 MG/M2, WEEKLY (1/W)
     Route: 042
     Dates: start: 20211007, end: 20211007
  2. CETUXIMAB [Suspect]
     Active Substance: CETUXIMAB
     Dosage: 250 MG/M2, WEEKLY (1/W)
     Route: 042
     Dates: start: 20211014, end: 20211104
  3. MONALIZUMAB [Concomitant]
     Active Substance: MONALIZUMAB
     Indication: Squamous cell carcinoma of head and neck
     Dosage: 750 MG, EACH TWO WEEKS
     Route: 042
     Dates: start: 20211007, end: 20211104
  4. PITAVASTATIN CALCIUM [Concomitant]
     Active Substance: PITAVASTATIN CALCIUM
     Indication: Product used for unknown indication
     Dosage: 2 MG, DAILY
     Route: 048
  5. GLIMEPIRIDE [Concomitant]
     Active Substance: GLIMEPIRIDE
     Indication: Diabetes mellitus
     Dosage: 1 MG, DAILY
     Route: 048
     Dates: end: 20210930
  6. GLIMEPIRIDE [Concomitant]
     Active Substance: GLIMEPIRIDE
     Dosage: 0.5 MG, DAILY
     Route: 048
     Dates: end: 20210930
  7. GLIMEPIRIDE [Concomitant]
     Active Substance: GLIMEPIRIDE
     Dosage: 1 MG, REPORTED AS EVERY 0.0 HOUR
     Route: 048
     Dates: end: 20211021
  8. GLIMEPIRIDE [Concomitant]
     Active Substance: GLIMEPIRIDE
     Dosage: 0.5 MG, DAILY
     Route: 048
     Dates: start: 20211022, end: 20211104
  9. METFORMIN HYDROCHLORIDE\VILDAGLIPTIN [Concomitant]
     Active Substance: METFORMIN HYDROCHLORIDE\VILDAGLIPTIN
     Indication: Product used for unknown indication
     Dosage: 1 DOSAGE FORM, REPORTED AS EVERY 0.0 HOUR
     Route: 048
     Dates: end: 20211021
  10. ENSURE [Concomitant]
     Active Substance: AMINO ACIDS\DEXTROSE\ELECTROLYTES NOS\SOYBEAN OIL\VITAMINS
     Indication: Product used for unknown indication
     Dosage: 250 ML, DAILY
     Route: 048
  11. KETOPROFEN [Concomitant]
     Active Substance: KETOPROFEN
     Indication: Product used for unknown indication
     Dosage: 40 MG, UNK
     Route: 062
  12. GLYCOSAMINOGLYCANS [Concomitant]
     Active Substance: GLYCOSAMINOGLYCANS
     Indication: Skin toxicity
     Dosage: 1 APPLICATION AS REQUIRED
     Route: 003
     Dates: start: 20211007
  13. NEORESTAMIN KOWA [Concomitant]
     Indication: Premedication
     Dosage: 50.00 MG BEFORE ADMINISTRATION OF CETUXIMAB
     Route: 048
     Dates: start: 20211007
  14. MINOCYCLINE HYDROCHLORIDE [Concomitant]
     Active Substance: MINOCYCLINE HYDROCHLORIDE
     Indication: Dermatitis acneiform
     Dosage: 100 MG, REPORTED AS EVERY 0.0 HOUR
     Route: 048
     Dates: start: 20211007
  15. POLARAMINE [Concomitant]
     Active Substance: DEXCHLORPHENIRAMINE MALEATE
     Indication: Pruritus
     Dosage: 5 MG, DAILY
     Route: 042
     Dates: start: 20211007, end: 20211007
  16. DEXAMETHASONE SODIUM PHOSPHATE [Concomitant]
     Active Substance: DEXAMETHASONE SODIUM PHOSPHATE
     Indication: Premedication
     Dosage: 6.60 MG BEFORE ADMINISTRATION OF CETUXIMAB
     Route: 042
     Dates: start: 20211007
  17. VILDAGLIPTIN [Concomitant]
     Active Substance: VILDAGLIPTIN
     Indication: Diabetes mellitus
     Dosage: 50 MG, DAILY
     Route: 048
     Dates: start: 20211015
  18. METGLUCO [Concomitant]
     Active Substance: METFORMIN HYDROCHLORIDE
     Indication: Diabetes mellitus
     Dosage: 500 MG, BID
     Route: 048
     Dates: start: 20211015, end: 20211021
  19. METGLUCO [Concomitant]
     Active Substance: METFORMIN HYDROCHLORIDE
     Dosage: 250 MG, DAILY
     Route: 048
     Dates: start: 20211022
  20. APIDRA SOLOSTAR [Concomitant]
     Active Substance: INSULIN GLULISINE
     Indication: Diabetes mellitus
     Dosage: 12 INTERNATIONAL UNIT, REPORTED AS EVERY 0.1 HOUR
     Route: 058
     Dates: start: 20211014
  21. HUMULIN R [Concomitant]
     Active Substance: INSULIN HUMAN
     Indication: Diabetes mellitus
     Dosage: 7 INTERNATIONAL UNIT, REPORTED AS EVERY 0.1 HOUR
     Route: 042
     Dates: start: 20211007, end: 20211008
  22. INSULIN GLARGINE [Concomitant]
     Active Substance: INSULIN GLARGINE
     Indication: Diabetes mellitus
     Dosage: 4 INTERNATIONAL UNIT, SINGLE
     Route: 058
     Dates: start: 20211018, end: 20211018
  23. INSULIN GLARGINE [Concomitant]
     Active Substance: INSULIN GLARGINE
     Dosage: 2 INTERNATIONAL UNIT, DAILY
     Route: 058
     Dates: start: 20211104
  24. METGREEN SR [Concomitant]
     Indication: Diabetes mellitus
     Dosage: 250 MG, DAILY
     Route: 048
     Dates: start: 20211022, end: 20211104
  25. LEVOTHYROXINE [Concomitant]
     Active Substance: LEVOTHYROXINE
     Indication: Hypothyroidism
     Dosage: 25 UG/INHAL
     Route: 048
     Dates: start: 20211101
  26. ACETAMINOPHEN [Concomitant]
     Active Substance: ACETAMINOPHEN
     Indication: Pyrexia
     Dosage: 1000 MG, DAILY
     Route: 042
     Dates: start: 20211107, end: 20211108
  27. METOCLOPRAMIDE HYDROCHLORIDE [Concomitant]
     Active Substance: METOCLOPRAMIDE HYDROCHLORIDE
     Indication: Duodenal ulcer
     Dosage: 10 MG, SINGLE
     Route: 042
     Dates: start: 20211110, end: 20211110
  28. OMEPRAZOLE [Concomitant]
     Active Substance: OMEPRAZOLE
     Indication: Duodenal ulcer
     Dosage: 20 MG, SINGLE
     Route: 042
     Dates: start: 20211110, end: 20211110
  29. OMEPRAZOLE [Concomitant]
     Active Substance: OMEPRAZOLE
     Dosage: 20 MG, REPORTED AS EVERY 0.0 HOUR
     Route: 042
     Dates: start: 20211111, end: 20211126
  30. HUMAN RED BLOOD CELL [Concomitant]
     Active Substance: HUMAN RED BLOOD CELL
     Indication: Duodenal ulcer
     Dosage: 4 INTERNATIONAL UNIT, SINGLE
     Route: 042
     Dates: start: 20211110, end: 20211110
  31. CALCIUM CHLORIDE\POTASSIUM CHLORIDE\SODIUM ACETATE\SODIUM CHLORIDE [Concomitant]
     Active Substance: CALCIUM CHLORIDE\POTASSIUM CHLORIDE\SODIUM ACETATE\SODIUM CHLORIDE
     Indication: Decreased appetite
     Dosage: 500 ML, SINGLE
     Route: 042
     Dates: start: 20211101, end: 20211101
  32. CALCIUM CHLORIDE\POTASSIUM CHLORIDE\SODIUM ACETATE\SODIUM CHLORIDE [Concomitant]
     Active Substance: CALCIUM CHLORIDE\POTASSIUM CHLORIDE\SODIUM ACETATE\SODIUM CHLORIDE
     Indication: Hyponatraemia
     Dosage: 500 ML, REPORTED AS EVERY 0.0 HOUR
     Route: 042
     Dates: start: 20211107, end: 20211107
  33. CALCIUM CHLORIDE\POTASSIUM CHLORIDE\SODIUM ACETATE\SODIUM CHLORIDE [Concomitant]
     Active Substance: CALCIUM CHLORIDE\POTASSIUM CHLORIDE\SODIUM ACETATE\SODIUM CHLORIDE
     Dosage: 1000 ML, UNKNOWN
     Route: 042
     Dates: start: 20211108, end: 20211109
  34. CALCIUM CHLORIDE\POTASSIUM CHLORIDE\SODIUM ACETATE\SODIUM CHLORIDE [Concomitant]
     Active Substance: CALCIUM CHLORIDE\POTASSIUM CHLORIDE\SODIUM ACETATE\SODIUM CHLORIDE
     Dosage: 500 ML, SINGLE
     Route: 042
     Dates: start: 20211110, end: 20211110
  35. CALCIUM CHLORIDE\POTASSIUM CHLORIDE\SODIUM ACETATE\SODIUM CHLORIDE [Concomitant]
     Active Substance: CALCIUM CHLORIDE\POTASSIUM CHLORIDE\SODIUM ACETATE\SODIUM CHLORIDE
     Dosage: 500 ML, DAILY
     Route: 042
     Dates: start: 20211110, end: 20211110
  36. SOLDEM 3 [Concomitant]
     Indication: Malaise
     Dosage: 500 ML, DAILY
     Route: 042
     Dates: start: 20211107, end: 20211108
  37. AMINO ACIDS\DEXTROSE\ELECTROLYTES NOS\VITAMINS [Concomitant]
     Active Substance: AMINO ACIDS\DEXTROSE\ELECTROLYTES NOS\VITAMINS
     Indication: Decreased appetite
     Dosage: 1000 ML, SINGLE
     Route: 042
     Dates: start: 20211108, end: 20211108
  38. ELNEOPA NF NO.1 [Concomitant]
     Indication: Decreased appetite
     Dosage: 1000 ML, DAILY
     Route: 042
     Dates: start: 20211109, end: 20211110
  39. ELNEOPA NF NO.1 [Concomitant]
     Dosage: 1000 ML, REPORTED AS EVERY 0.0 HOUR
     Route: 042
     Dates: start: 20211111, end: 20211111
  40. HALOPERIDOL [Concomitant]
     Active Substance: HALOPERIDOL
     Indication: Malaise
     Dosage: 5 MG, SINGLE
     Route: 042
     Dates: start: 20211111, end: 20211111
  41. AMINO ACIDS\DEXTROSE\ELECTROLYTES NOS\MINERALS\VITAMINS [Concomitant]
     Active Substance: AMINO ACIDS\DEXTROSE\ELECTROLYTES NOS\MINERALS\VITAMINS
     Indication: Decreased appetite
     Dosage: 1000 ML, REPORTED AS EVERY 0.0 HOUR
     Route: 042
     Dates: start: 20211112, end: 20211119

REACTIONS (5)
  - Duodenal ulcer [Recovered/Resolved]
  - Decreased appetite [Recovered/Resolved]
  - Malaise [Recovered/Resolved]
  - Altered state of consciousness [Not Recovered/Not Resolved]
  - Anaemia [Recovered/Resolved]

NARRATIVE: CASE EVENT DATE: 20211029
